FAERS Safety Report 4426599-7 (Version None)
Quarter: 2004Q3

REPORT INFORMATION
  Report Type: 
  Country: None (occurrence: None)
  Receive Date: 20040812
  Receipt Date: 20040812
  Transmission Date: 20050211
  Serious: Yes (Life-Threatening)
  Sender: FDA-Public Use
  Company Number: None

PATIENT
  Sex: Female

DRUGS (1)
  1. ENBREL [Suspect]
     Indication: PSORIASIS
     Dosage: 50MG SQ BIW
     Route: 058

REACTIONS (3)
  - EYE SWELLING [None]
  - SWELLING FACE [None]
  - SWOLLEN TONGUE [None]
